FAERS Safety Report 7607237-9 (Version None)
Quarter: 2011Q3

REPORT INFORMATION
  Report Type: 
  Country: None (occurrence: None)
  Receive Date: 20110712
  Receipt Date: 20110712
  Transmission Date: 20111222
  Serious: Yes (Life-Threatening, Hospitalization)
  Sender: FDA-Public Use
  Company Number: None

PATIENT
  Age: 62 Year
  Sex: Male
  Weight: 95.9 kg

DRUGS (1)
  1. SIMVASTATIN [Suspect]
     Indication: HYPERLIPIDAEMIA
     Dosage: 10 MG AT BEDTIME PO
     Route: 048
     Dates: start: 20100908, end: 20110310

REACTIONS (12)
  - SYNCOPE [None]
  - MENTAL STATUS CHANGES [None]
  - BRADYCARDIA [None]
  - MYALGIA [None]
  - HYPOTENSION [None]
  - LOSS OF CONSCIOUSNESS [None]
  - RENAL FAILURE ACUTE [None]
  - CONFUSIONAL STATE [None]
  - SEDATION [None]
  - UNRESPONSIVE TO STIMULI [None]
  - BLOOD CREATINE PHOSPHOKINASE INCREASED [None]
  - LETHARGY [None]
